FAERS Safety Report 7599663-1 (Version None)
Quarter: 2011Q3

REPORT INFORMATION
  Report Type: 
  Country: None (occurrence: None)
  Receive Date: 20110711
  Receipt Date: 20110627
  Transmission Date: 20111222
  Serious: Yes (Hospitalization)
  Sender: FDA-Public Use
  Company Number: JP-ELI_LILLY_AND_COMPANY-JP201104001328

PATIENT
  Sex: Female
  Weight: 50 kg

DRUGS (8)
  1. PANTOSIN [Concomitant]
     Dosage: 400 MG, QD
     Route: 048
     Dates: end: 20110331
  2. NITRAZEPAM [Concomitant]
     Dosage: 10 MG, QD
     Route: 048
     Dates: end: 20110331
  3. SENNARIDE [Concomitant]
     Dosage: 2 DF, QD
     Dates: end: 20110331
  4. VENCOLL [Concomitant]
     Dosage: 6 DF, QD
     Route: 048
     Dates: end: 20110331
  5. LEVOMEPROMAZIN                     /00038602/ [Concomitant]
     Dosage: 50 MG, QD
     Route: 048
     Dates: end: 20110331
  6. VEGETAMIN A [Concomitant]
     Dosage: 1 DF, QD
     Route: 048
     Dates: end: 20110331
  7. ZYPREXA [Suspect]
     Indication: SCHIZOPHRENIA
     Dosage: 5 MG, BID
     Route: 048
     Dates: start: 20100702, end: 20110401
  8. DORAL [Concomitant]
     Dosage: 15 MG, QD
     Route: 048
     Dates: end: 20110331

REACTIONS (3)
  - UPPER RESPIRATORY TRACT INFLAMMATION [None]
  - WHITE BLOOD CELL COUNT DECREASED [None]
  - GRANULOCYTE COUNT DECREASED [None]
